FAERS Safety Report 7355593-1 (Version None)
Quarter: 2011Q1

REPORT INFORMATION
  Report Type: 
  Country: None (occurrence: None)
  Receive Date: 20110316
  Receipt Date: 20110310
  Transmission Date: 20110831
  Serious: Yes (Hospitalization)
  Sender: FDA-Public Use
  Company Number: B0705293A

PATIENT
  Sex: Female
  Weight: 90 kg

DRUGS (11)
  1. AMOXICILLIN TRIHYDRATE [Suspect]
     Dosage: 3G SIX TIMES PER DAY
     Route: 042
     Dates: start: 20110110, end: 20110114
  2. CLAFORAN [Suspect]
     Route: 042
     Dates: start: 20110110, end: 20110119
  3. BACTRIM [Concomitant]
     Dosage: 3TAB PER DAY
     Route: 065
     Dates: start: 20101223, end: 20110119
  4. HYPNOVEL [Concomitant]
     Route: 065
  5. HALDOL [Concomitant]
     Route: 065
  6. ASPEGIC 325 [Concomitant]
     Dosage: 100MG UNKNOWN
     Route: 065
  7. NEXIUM [Concomitant]
     Route: 065
     Dates: end: 20110112
  8. ZOVIRAX [Suspect]
     Dosage: 900MG THREE TIMES PER DAY
     Route: 042
     Dates: start: 20110110, end: 20110113
  9. CALCITONINE [Concomitant]
     Route: 065
  10. CALCIPARINE [Concomitant]
     Route: 065
  11. LOXEN [Concomitant]
     Route: 065

REACTIONS (3)
  - CRYSTAL URINE [None]
  - OVERDOSE [None]
  - RENAL FAILURE ACUTE [None]
